FAERS Safety Report 24603684 (Version 1)
Quarter: 2024Q4

REPORT INFORMATION
  Report Type: Spontaneous
  Country: FR (occurrence: FR)
  Receive Date: 20241111
  Receipt Date: 20241111
  Transmission Date: 20250114
  Serious: Yes (Life-Threatening)
  Sender: FRESENIUS KABI
  Company Number: None

PATIENT
  Age: 56 Year
  Sex: Male
  Weight: 61 kg

DRUGS (9)
  1. OXALIPLATIN [Suspect]
     Active Substance: OXALIPLATIN
     Indication: Pancreatic carcinoma
     Dosage: ROUTE: INTRAVENOUS
     Dates: start: 20240822
  2. IRINOTECAN [Concomitant]
     Active Substance: IRINOTECAN
  3. FLUOROURACIL [Concomitant]
     Active Substance: FLUOROURACIL
     Indication: Product used for unknown indication
  4. ONDANSETRON HYDROCHLORIDE [Concomitant]
     Active Substance: ONDANSETRON HYDROCHLORIDE
     Indication: Chemotherapy side effect prophylaxis
     Dosage: ROUTE: INTRAVENOUS
  5. METHYLPREDNISOLONE HIKMA 40 mg, powder for solution for injection [Concomitant]
     Indication: Chemotherapy side effect prophylaxis
     Dosage: 60 MG?ROUTE: INTRAVENOUS
     Dates: start: 20210802
  6. POLARAMINE [Concomitant]
     Active Substance: DEXCHLORPHENIRAMINE MALEATE
     Indication: Urticaria
     Dosage: 5MG?ROUTE: INTRAVENOUS
     Dates: start: 20210802
  7. CO RENITEC, scored tablet [Concomitant]
     Indication: Product used for unknown indication
  8. AMLODIPINE BESYLATE [Concomitant]
     Active Substance: AMLODIPINE BESYLATE
     Indication: Product used for unknown indication
  9. RABEPRAZOLE SODIUM [Concomitant]
     Active Substance: RABEPRAZOLE SODIUM
     Indication: Product used for unknown indication

REACTIONS (1)
  - Anaphylactoid reaction [Recovered/Resolved]

NARRATIVE: CASE EVENT DATE: 20240822
